FAERS Safety Report 13566469 (Version 1)
Quarter: 2017Q2

REPORT INFORMATION
  Report Type: Report from Study
  Country: None (occurrence: US)
  Receive Date: 20170522
  Receipt Date: 20170522
  Transmission Date: 20170830
  Serious: Yes (Hospitalization, Other)
  Sender: FDA-Public Use
  Company Number: US-ABBVIE-17K-163-1980187-00

PATIENT
  Age: 74 Year
  Sex: Female

DRUGS (2)
  1. HUMIRA [Suspect]
     Active Substance: ADALIMUMAB
     Route: 058
     Dates: start: 2017, end: 20170331
  2. HUMIRA [Suspect]
     Active Substance: ADALIMUMAB
     Indication: COLITIS ULCERATIVE
     Route: 058
     Dates: start: 20170214, end: 20170214

REACTIONS (4)
  - Fatigue [Not Recovered/Not Resolved]
  - Pneumothorax [Recovered/Resolved]
  - Anxiety [Not Recovered/Not Resolved]
  - Malignant neoplasm of thorax [Unknown]

NARRATIVE: CASE EVENT DATE: 20170315
